FAERS Safety Report 10145815 (Version 1)
Quarter: 2014Q2

REPORT INFORMATION
  Report Type: Spontaneous
  Country: US (occurrence: US)
  Receive Date: 20140501
  Receipt Date: 20140501
  Transmission Date: 20141212
  Serious: No
  Sender: FDA-Public Use
  Company Number: US-ABBVIE-14P-163-1211229-00

PATIENT
  Sex: Female
  Weight: 81.72 kg

DRUGS (3)
  1. CREON [Suspect]
     Indication: DYSPEPSIA
     Dosage: UNKNOWN DOSING INSTRUCTIONS
     Dates: start: 201402, end: 20140307
  2. OPIUM [Concomitant]
     Indication: DIARRHOEA
  3. OTHER CONCOMITANT MEDICATIONS [Concomitant]
     Indication: PRODUCT USED FOR UNKNOWN INDICATION

REACTIONS (1)
  - Product solubility abnormal [Not Recovered/Not Resolved]
